FAERS Safety Report 10101672 (Version 1)
Quarter: 2014Q2

REPORT INFORMATION
  Report Type: Spontaneous
  Country: US (occurrence: None)
  Receive Date: 20140423
  Receipt Date: 20140423
  Transmission Date: 20141212
  Serious: Yes (Other)
  Sender: FDA-Public Use
  Company Number: None

PATIENT
  Age: 33 Year
  Sex: Female
  Weight: 45.36 kg

DRUGS (1)
  1. ZZZQUIL [Suspect]
     Indication: INSOMNIA
     Dates: start: 20140415, end: 20140421

REACTIONS (2)
  - Hallucination [None]
  - Abnormal dreams [None]
